FAERS Safety Report 5313633-5 (Version None)
Quarter: 2007Q2

REPORT INFORMATION
  Report Type: 
  Country: None (occurrence: None)
  Receive Date: 20070425
  Receipt Date: 20070413
  Transmission Date: 20071010
  Serious: Yes (Other)
  Sender: FDA-Public Use
  Company Number: 2007SP006244

PATIENT
  Age: 49 Year
  Sex: Male
  Weight: 61 kg

DRUGS (15)
  1. PEG-INTRON [Suspect]
     Indication: HEPATITIS C
     Dosage: SEE IMAGE
     Route: 058
     Dates: start: 20050801, end: 20050808
  2. PEG-INTRON [Suspect]
     Indication: HEPATITIS C
     Dosage: SEE IMAGE
     Route: 058
     Dates: start: 20050915, end: 20060801
  3. REBETOL [Suspect]
     Indication: HEPATITIS C
     Dosage: SEE IMAGE
     Route: 048
     Dates: start: 20050801, end: 20050807
  4. REBETOL [Suspect]
     Indication: HEPATITIS C
     Dosage: SEE IMAGE
     Route: 048
     Dates: start: 20050808, end: 20050811
  5. REBETOL [Suspect]
     Indication: HEPATITIS C
     Dosage: SEE IMAGE
     Route: 048
     Dates: start: 20050915, end: 20060801
  6. RETROVIR [Concomitant]
  7. EPIVIR [Concomitant]
  8. CRIXIVAN [Concomitant]
  9. KALETRA [Concomitant]
  10. VIREAD [Concomitant]
  11. RETROVIR [Concomitant]
  12. NU-LOTAN [Concomitant]
  13. FLUITRAN [Concomitant]
  14. VIDEX [Concomitant]
  15. ESPO [Concomitant]

REACTIONS (6)
  - CD4 LYMPHOCYTES DECREASED [None]
  - CD8 LYMPHOCYTES DECREASED [None]
  - HAEMOGLOBIN DECREASED [None]
  - PLATELET COUNT DECREASED [None]
  - RED BLOOD CELL COUNT DECREASED [None]
  - WHITE BLOOD CELL COUNT DECREASED [None]
